FAERS Safety Report 23570239 (Version 2)
Quarter: 2024Q1

REPORT INFORMATION
  Report Type: Spontaneous
  Country: SE (occurrence: SE)
  Receive Date: 20240227
  Receipt Date: 20240315
  Transmission Date: 20240410
  Serious: Yes (Life-Threatening)
  Sender: FDA-Public Use
  Company Number: None

PATIENT
  Age: 28 Year
  Sex: Female

DRUGS (14)
  1. OLANZAPINE PAMOATE [Suspect]
     Active Substance: OLANZAPINE PAMOATE
     Indication: Ill-defined disorder
     Dosage: POWDER AND LIQUID FOR INJECTION, SUSPENSION
     Route: 030
     Dates: start: 20231019, end: 20231119
  2. OLANZAPINE PAMOATE [Suspect]
     Active Substance: OLANZAPINE PAMOATE
     Indication: Adverse reaction
     Dosage: POWDER AND LIQUID FOR INJECTION, SUSPENSION
     Route: 030
     Dates: start: 20231019, end: 20231119
  3. AKINETON [Concomitant]
     Active Substance: BIPERIDEN HYDROCHLORIDE
     Route: 055
     Dates: start: 20231019, end: 20231020
  4. AKINETON [Concomitant]
     Active Substance: BIPERIDEN HYDROCHLORIDE
     Route: 055
     Dates: start: 20231020, end: 20231020
  5. TRIMEPRAZINE TARTRATE [Concomitant]
     Active Substance: TRIMEPRAZINE TARTRATE
     Route: 048
     Dates: start: 20231019, end: 20231020
  6. PROMETHAZINE HYDROCHLORIDE\THIOUREA [Concomitant]
     Active Substance: PROMETHAZINE HYDROCHLORIDE\THIOUREA
     Route: 048
     Dates: start: 20231019, end: 20231020
  7. Melatonin AGB Pharma [Concomitant]
     Route: 048
     Dates: start: 20231019, end: 20231020
  8. LORAZEPAM [Concomitant]
     Active Substance: LORAZEPAM
     Route: 048
     Dates: start: 20231020, end: 20231020
  9. DIAZEPAM [Concomitant]
     Active Substance: DIAZEPAM
     Route: 048
     Dates: start: 20231019, end: 20231020
  10. DIAZEPAM [Concomitant]
     Active Substance: DIAZEPAM
     Route: 048
     Dates: start: 20231020, end: 20231020
  11. TRIMEPRAZINE [Concomitant]
     Active Substance: TRIMEPRAZINE
     Route: 048
     Dates: start: 20231020, end: 20231020
  12. ABILIFY [Concomitant]
     Active Substance: ARIPIPRAZOLE
     Indication: Adverse reaction
  13. RISPERDAL [Concomitant]
     Active Substance: RISPERIDONE
     Indication: Adverse reaction
  14. SERTRALINE [Concomitant]
     Active Substance: SERTRALINE HYDROCHLORIDE
     Indication: Adverse reaction

REACTIONS (12)
  - Depressed level of consciousness [Recovered/Resolved]
  - Delirium [Recovered/Resolved]
  - Ataxia [Recovered/Resolved]
  - Muscle twitching [Recovered/Resolved]
  - Agitation [Recovered/Resolved]
  - Dysuria [Unknown]
  - Blood prolactin increased [Not Recovered/Not Resolved]
  - Electrocardiogram abnormal [Unknown]
  - Extrasystoles [Unknown]
  - White blood cell count increased [Unknown]
  - Urinary incontinence [Recovered/Resolved]
  - Loss of consciousness [Recovered/Resolved]

NARRATIVE: CASE EVENT DATE: 20231019
